FAERS Safety Report 7710244-9 (Version None)
Quarter: 2011Q3

REPORT INFORMATION
  Report Type: 
  Country: None (occurrence: None)
  Receive Date: 20110825
  Receipt Date: 20110810
  Transmission Date: 20111222
  Serious: Yes (Hospitalization)
  Sender: FDA-Public Use
  Company Number: US-UCBSA-036689

PATIENT
  Sex: Male
  Weight: 56.24 kg

DRUGS (3)
  1. PREDNISONE [Concomitant]
     Indication: INFLAMMATION
     Route: 048
     Dates: start: 20110525
  2. CIMZIA [Suspect]
     Indication: CROHN'S DISEASE
     Route: 058
     Dates: start: 20110617
  3. LOPERAMIDE HCL [Concomitant]
     Indication: DIARRHOEA
     Route: 048
     Dates: start: 20100801

REACTIONS (1)
  - CROHN'S DISEASE [None]
